FAERS Safety Report 10238515 (Version 1)
Quarter: 2014Q2

REPORT INFORMATION
  Report Type: Other
  Country: HR (occurrence: HR)
  Receive Date: 20140616
  Receipt Date: 20140616
  Transmission Date: 20141212
  Serious: Yes (Other)
  Sender: FDA-Public Use
  Company Number: HR-ASTELLAS-2014EU007346

PATIENT
  Age: 36 Year
  Sex: Female

DRUGS (1)
  1. VESICARE [Suspect]
     Indication: MIXED INCONTINENCE
     Route: 048
     Dates: start: 20140408, end: 20140519

REACTIONS (3)
  - Angioedema [Recovered/Resolved]
  - Oedema genital [Recovered/Resolved]
  - Pruritus [Recovered/Resolved]
